FAERS Safety Report 9316215 (Version 2)
Quarter: 2013Q2

REPORT INFORMATION
  Report Type: Spontaneous
  Country: BE (occurrence: BE)
  Receive Date: 20130530
  Receipt Date: 20130613
  Transmission Date: 20140414
  Serious: Yes (Hospitalization)
  Sender: FDA-Public Use
  Company Number: PHHY2013BE049742

PATIENT
  Sex: 0

DRUGS (7)
  1. EXELON PATCH [Suspect]
     Dosage: 4.6 MG, QD
     Route: 062
     Dates: start: 20130208
  2. EXELON PATCH [Suspect]
     Dosage: 9.5 MG, QD
     Route: 062
  3. SERLAIN [Concomitant]
     Dates: start: 2007
  4. PROLOPA [Concomitant]
     Dates: start: 2008
  5. AZILECT [Concomitant]
     Dates: start: 2009
  6. MIRAPEXIN [Concomitant]
     Dates: start: 2011
  7. ALDACTAZINE [Concomitant]
     Dates: start: 2012

REACTIONS (6)
  - Respiratory acidosis [Recovering/Resolving]
  - Bronchospasm [Recovering/Resolving]
  - Dyspnoea [Recovering/Resolving]
  - Cough [Recovering/Resolving]
  - Wheezing [Recovering/Resolving]
  - Drug administration error [Unknown]
